FAERS Safety Report 4967908-X (Version None)
Quarter: 2006Q2

REPORT INFORMATION
  Report Type: 
  Country: None (occurrence: None)
  Receive Date: 20060410
  Receipt Date: 20060330
  Transmission Date: 20061013
  Serious: Yes (Hospitalization)
  Sender: FDA-Public Use
  Company Number: US-MERCK-0604USA00162

PATIENT
  Age: 55 Year
  Sex: Male
  Weight: 94 kg

DRUGS (3)
  1. VIOXX [Suspect]
     Indication: BACK PAIN
     Route: 048
     Dates: start: 20030616, end: 20040915
  2. VIOXX [Suspect]
     Indication: SHOULDER PAIN
     Route: 048
     Dates: start: 20030616, end: 20040915
  3. ADVIL [Concomitant]
     Route: 065

REACTIONS (3)
  - CARDIAC DISORDER [None]
  - CHEST PAIN [None]
  - HYPOAESTHESIA [None]
